FAERS Safety Report 9299298 (Version 2)
Quarter: 2013Q2

REPORT INFORMATION
  Report Type: Report from Study
  Country: GB (occurrence: GB)
  Receive Date: 20130520
  Receipt Date: 20130603
  Transmission Date: 20140414
  Serious: Yes (Hospitalization)
  Sender: FDA-Public Use
  Company Number: PHHY2013GB048417

PATIENT
  Age: 70 Year
  Sex: Male

DRUGS (6)
  1. 5-FLUOROURACIL [Suspect]
     Indication: COLORECTAL CANCER METASTATIC
     Dosage: 575 MG, DAILY
     Route: 040
     Dates: start: 20130411, end: 20130411
  2. 5-FLUOROURACIL [Suspect]
     Dosage: 3500 MG, DAILY
     Route: 042
     Dates: start: 20130411, end: 20130412
  3. OXALIPLATIN [Suspect]
     Indication: COLORECTAL CANCER METASTATIC
     Dosage: 122.5 MG DAILY
     Route: 042
     Dates: start: 20130411, end: 20130411
  4. LEUCOVORIN CALCIUM [Suspect]
     Indication: COLORECTAL CANCER METASTATIC
     Dosage: 350 MG DAILY
     Route: 042
     Dates: start: 20130411, end: 20130411
  5. BEVACIZUMAB [Suspect]
     Indication: COLORECTAL CANCER METASTATIC
     Dosage: 362.5 MG, DAILY
     Route: 042
     Dates: start: 20130411, end: 20130411
  6. FLUCLOXACILLIN [Concomitant]
     Dates: start: 20130325, end: 20130331

REACTIONS (1)
  - Pyrexia [Not Recovered/Not Resolved]
